FAERS Safety Report 13008892 (Version 1)
Quarter: 2016Q4

REPORT INFORMATION
  Report Type: Spontaneous
  Country: DE (occurrence: DE)
  Receive Date: 20161208
  Receipt Date: 20161208
  Transmission Date: 20170207
  Serious: Yes (Other)
  Sender: FDA-Public Use
  Company Number: DE-HQ SPECIALTY-DE-2016INT000979

PATIENT

DRUGS (2)
  1. CISPLATIN. [Suspect]
     Active Substance: CISPLATIN
     Indication: GASTRIC CANCER
     Dosage: 7.5 MG/M2, IN A 150-ML NAC1 0.9%
     Route: 033
  2. DOXORUBICIN [Suspect]
     Active Substance: DOXORUBICIN
     Indication: GASTRIC CANCER
     Dosage: 1.5 MG/M2 BODY SURFACE, IN A 50 ML NAC1 0.9%
     Route: 033

REACTIONS (2)
  - C-reactive protein increased [Unknown]
  - Hepatotoxicity [Unknown]
